APPROVED DRUG PRODUCT: HYDROCHLOROTHIAZIDE
Active Ingredient: HYDROCHLOROTHIAZIDE
Strength: 25MG
Dosage Form/Route: TABLET;ORAL
Application: A040735 | Product #002
Applicant: PHARMOBEDIENT CONSULTING LLC
Approved: Jan 23, 2007 | RLD: No | RS: No | Type: DISCN